FAERS Safety Report 9744782 (Version 1)
Quarter: 2013Q4

REPORT INFORMATION
  Report Type: Spontaneous
  Country: US (occurrence: US)
  Receive Date: 20131210
  Receipt Date: 20131210
  Transmission Date: 20140711
  Serious: Yes (Hospitalization)
  Sender: FDA-Public Use
  Company Number: US-BRISTOL-MYERS SQUIBB COMPANY-19872449

PATIENT
  Age: 67 Year
  Sex: Female
  Weight: 77.1 kg

DRUGS (4)
  1. BYETTA PEN DISPOSABLE [Suspect]
     Indication: TYPE 2 DIABETES MELLITUS
     Dosage: 10MCG BID UNTIL FEB13,?DOSE REDUCED TO 5MCG BID ON JUL/AUG2013
     Route: 058
     Dates: end: 201308
  2. METFORMIN [Suspect]
     Indication: TYPE 2 DIABETES MELLITUS
  3. ARIMIDEX [Concomitant]
     Route: 058
  4. LUPRON DEPOT [Concomitant]

REACTIONS (4)
  - Upper respiratory tract infection [Recovered/Resolved]
  - Blood glucose decreased [Recovered/Resolved]
  - Weight decreased [Recovered/Resolved]
  - Drug administration error [Recovered/Resolved]
